FAERS Safety Report 9319533 (Version 21)
Quarter: 2016Q2

REPORT INFORMATION
  Report Type: Spontaneous
  Country: US (occurrence: US)
  Receive Date: 20130530
  Receipt Date: 20160411
  Transmission Date: 20160815
  Serious: Yes (Hospitalization, Other)
  Sender: FDA-Public Use
  Company Number: US-GLAXOSMITHKLINE-A0998877A

PATIENT
  Age: 67 Year
  Sex: Female
  Weight: 74 kg

DRUGS (20)
  1. FLOLAN [Suspect]
     Active Substance: EPOPROSTENOL SODIUM
     Dosage: UNK
     Dates: start: 20121019
  2. FLOLAN [Suspect]
     Active Substance: EPOPROSTENOL SODIUM
     Dosage: 38.31 NG/KG/MIN (CONCENTRATION 45,000 NG/ML, PUMP RATE 76 ML/DAY, VIAL STRENGTH 1.5 MG), CO
     Route: 042
  3. FLOLAN [Suspect]
     Active Substance: EPOPROSTENOL SODIUM
     Dosage: 33.45 NG/KG/MIN, CO
     Dates: start: 20121018
  4. FLOLAN [Suspect]
     Active Substance: EPOPROSTENOL SODIUM
     Dosage: 33.45 DF, CO
  5. FLOLAN [Suspect]
     Active Substance: EPOPROSTENOL SODIUM
     Indication: PULMONARY ARTERIAL HYPERTENSION
     Dosage: 38.31 NG/KG/MIN CONCENTRATION 45,000 NG/MLVIAL STRENGTH: 1.5 MG6.9NG/KG/MIN CONTINOUSLY36.29 NG[...]
     Route: 042
     Dates: start: 20121015
  6. FLOLAN [Suspect]
     Active Substance: EPOPROSTENOL SODIUM
     Dosage: UNK
     Dates: start: 20121019
  7. FLOLAN [Suspect]
     Active Substance: EPOPROSTENOL SODIUM
     Dosage: UNK
     Dates: start: 20121019
  8. FLOLAN [Suspect]
     Active Substance: EPOPROSTENOL SODIUM
     Dosage: 38.3 NG/KG/MIN (CONCENTRATION 45,000 NG/ML, PUMP RATE 76 ML/DAY, VIAL STRENGTH 1.5 MG), CO
     Route: 042
  9. FLOLAN [Suspect]
     Active Substance: EPOPROSTENOL SODIUM
     Dosage: UNK
     Dates: start: 20121019
  10. FLOLAN [Suspect]
     Active Substance: EPOPROSTENOL SODIUM
     Dosage: UNK
     Dates: start: 20121019
  11. TREPROSTINIL SODIUM [Concomitant]
     Active Substance: TREPROSTINIL SODIUM
     Indication: PULMONARY ARTERIAL HYPERTENSION
     Dosage: UNK, UNK
     Route: 055
     Dates: start: 20120716
  12. FLOLAN [Suspect]
     Active Substance: EPOPROSTENOL SODIUM
     Dosage: UNK
     Dates: start: 20121019
  13. FLOLAN [Suspect]
     Active Substance: EPOPROSTENOL SODIUM
     Dosage: UNK
     Dates: start: 20121019
  14. FLOLAN [Suspect]
     Active Substance: EPOPROSTENOL SODIUM
     Dosage: UNK
     Dates: start: 20121019
  15. FLOLAN [Suspect]
     Active Substance: EPOPROSTENOL SODIUM
     Dosage: 30 NG/KG/MIN (CONCENTRATION 45,000 NG/ML, PUMP RATE 68 ML/DAY, VIAL STRENGTH 1.5 MG), CO
     Route: 042
  16. FLOLAN [Suspect]
     Active Substance: EPOPROSTENOL SODIUM
     Dosage: 38.31 NG/KG/MIN, CO
  17. FLOLAN [Suspect]
     Active Substance: EPOPROSTENOL SODIUM
     Dosage: UNK, CO
     Dates: start: 20121018
  18. FLOLAN [Suspect]
     Active Substance: EPOPROSTENOL SODIUM
     Dosage: 33.45 NG/KG/MIN CONTINUOUS
     Route: 042
     Dates: start: 20121018
  19. FLOLAN [Suspect]
     Active Substance: EPOPROSTENOL SODIUM
     Dosage: UNK, CO
     Dates: start: 20121018
  20. ASPIRIN. [Concomitant]
     Active Substance: ASPIRIN

REACTIONS (53)
  - Pain [Not Recovered/Not Resolved]
  - Fall [Unknown]
  - Catheter site discharge [Unknown]
  - Gastrointestinal disorder [Unknown]
  - Lymphadenopathy [Unknown]
  - Anxiety [Unknown]
  - Catheter site pain [Unknown]
  - Flushing [Unknown]
  - Pancreatic carcinoma [Not Recovered/Not Resolved]
  - Hip fracture [Unknown]
  - Spleen disorder [Unknown]
  - Hip surgery [Unknown]
  - White blood cell count increased [Unknown]
  - Arthralgia [Unknown]
  - Pancreatic disorder [Unknown]
  - Syncope [Unknown]
  - Injection site vesicles [Not Recovered/Not Resolved]
  - Head injury [Unknown]
  - Paracentesis [Unknown]
  - Skin injury [Unknown]
  - Local swelling [Not Recovered/Not Resolved]
  - Catheterisation cardiac [Recovered/Resolved]
  - Pneumonia [Unknown]
  - Pyrexia [Unknown]
  - Upper gastrointestinal haemorrhage [Unknown]
  - Haematochezia [Unknown]
  - Fall [Unknown]
  - Rehabilitation therapy [Unknown]
  - Dyspnoea [Unknown]
  - Catheter site erythema [Not Recovered/Not Resolved]
  - Peripheral swelling [Unknown]
  - Injection site exfoliation [Not Recovered/Not Resolved]
  - Epistaxis [Unknown]
  - Cellulitis [Unknown]
  - Palpitations [Unknown]
  - Pain in jaw [Not Recovered/Not Resolved]
  - Injection site pruritus [Not Recovered/Not Resolved]
  - Injection site dryness [Not Recovered/Not Resolved]
  - Fibromyalgia [Not Recovered/Not Resolved]
  - Complication associated with device [Unknown]
  - Device leakage [Recovered/Resolved]
  - Device related infection [Unknown]
  - Loss of consciousness [Unknown]
  - Oesophageal rupture [Unknown]
  - Nausea [Unknown]
  - Gastroenteritis viral [Unknown]
  - Vomiting [Unknown]
  - Clostridium difficile infection [Unknown]
  - Dyskinesia [Unknown]
  - Joint injury [Unknown]
  - Erythema [Unknown]
  - Gastric disorder [Unknown]
  - Oedema [Unknown]

NARRATIVE: CASE EVENT DATE: 20130309
